FAERS Safety Report 11829895 (Version 1)
Quarter: 2015Q4

REPORT INFORMATION
  Report Type: Spontaneous
  Country: FR (occurrence: FR)
  Receive Date: 20151212
  Receipt Date: 20151212
  Transmission Date: 20160305
  Serious: Yes (Death, Hospitalization)
  Sender: FDA-Public Use
  Company Number: FR-ASTRAZENECA-2015SF23862

PATIENT
  Sex: Female

DRUGS (1)
  1. INEXIUM [Suspect]
     Active Substance: ESOMEPRAZOLE
     Route: 048

REACTIONS (6)
  - Septic shock [Unknown]
  - Lung disorder [Unknown]
  - Hepatic encephalopathy [Unknown]
  - Bacteraemia [Unknown]
  - Status epilepticus [Fatal]
  - Hypomagnesaemia [Fatal]
